FAERS Safety Report 9258464 (Version 2)
Quarter: 2013Q2

REPORT INFORMATION
  Report Type: Spontaneous
  Country: FR (occurrence: FR)
  Receive Date: 20130426
  Receipt Date: 20130429
  Transmission Date: 20140414
  Serious: Yes (Other)
  Sender: FDA-Public Use
  Company Number: FR-ABBOTT-12P-056-1001730-00

PATIENT
  Sex: Female

DRUGS (1)
  1. HUMIRA [Suspect]
     Indication: CROHN^S DISEASE
     Dates: start: 201205

REACTIONS (4)
  - Dermatitis allergic [Unknown]
  - Dermatitis allergic [Unknown]
  - Drug dose omission [Unknown]
  - Dermatitis allergic [Unknown]
